FAERS Safety Report 4882825-1 (Version None)
Quarter: 2005Q4

REPORT INFORMATION
  Report Type: 
  Country: None (occurrence: None)
  Receive Date: 20051201
  Receipt Date: 20050927
  Transmission Date: 20060501
  Serious: No
  Sender: FDA-Public Use
  Company Number: 2005PV002563

PATIENT
  Age: 56 Year
  Sex: Female
  Weight: 114.3065 kg

DRUGS (5)
  1. BYETTA [Suspect]
     Indication: DIABETES MELLITUS NON-INSULIN-DEPENDENT
     Dosage: 10 MCG;BID;SC
     Route: 058
     Dates: start: 20050819
  2. METFORMIN HCL [Concomitant]
  3. AMARYL [Concomitant]
  4. TOPROL-XL [Concomitant]
  5. ASPIRIN [Concomitant]

REACTIONS (5)
  - DECREASED APPETITE [None]
  - ENERGY INCREASED [None]
  - NAUSEA [None]
  - SINUSITIS [None]
  - WEIGHT DECREASED [None]
